FAERS Safety Report 5252426-4 (Version None)
Quarter: 2007Q1

REPORT INFORMATION
  Report Type: 
  Country: None (occurrence: None)
  Receive Date: 20070301
  Receipt Date: 20061116
  Transmission Date: 20070707
  Serious: Yes (Hospitalization)
  Sender: FDA-Public Use
  Company Number: US-BRISTOL-MYERS SQUIBB COMPANY-13549464

PATIENT
  Age: 65 Year
  Sex: Female
  Weight: 59 kg

DRUGS (8)
  1. ERBITUX [Suspect]
     Indication: TONSIL CANCER
     Dosage: 100 MG/50 ML
     Route: 042
  2. RADIATION THERAPY [Concomitant]
     Indication: TONSIL CANCER
  3. SOMA [Concomitant]
  4. DYAZIDE [Concomitant]
  5. DALMANE [Concomitant]
  6. K-DUR 10 [Concomitant]
  7. PREMARIN [Concomitant]
  8. SYNTHROID [Concomitant]

REACTIONS (3)
  - DERMATITIS ACNEIFORM [None]
  - MUCOSAL INFLAMMATION [None]
  - PYREXIA [None]
